FAERS Safety Report 9054797 (Version 1)
Quarter: 2013Q1

REPORT INFORMATION
  Report Type: Spontaneous
  Country: TR (occurrence: TR)
  Receive Date: 20130208
  Receipt Date: 20130208
  Transmission Date: 20140127
  Serious: Yes (Hospitalization)
  Sender: FDA-Public Use
  Company Number: TR-ROXANE LABORATORIES, INC.-2013-RO-00201RO

PATIENT
  Age: 27 Year
  Sex: Male

DRUGS (1)
  1. DEXAMETHASONE [Suspect]
     Indication: CEREBROVASCULAR ARTERIOVENOUS MALFORMATION

REACTIONS (1)
  - Osteonecrosis [Recovered/Resolved]
